FAERS Safety Report 4327759-6 (Version None)
Quarter: 2004Q1

REPORT INFORMATION
  Report Type: 
  Country: None (occurrence: None)
  Receive Date: 20040325
  Receipt Date: 20040308
  Transmission Date: 20041129
  Serious: Yes (Death, Hospitalization)
  Sender: FDA-Public Use
  Company Number: 2004PL000019

PATIENT
  Age: 35 Year
  Sex: Male

DRUGS (3)
  1. AZATHIOPRINE [Suspect]
     Indication: CROHN'S DISEASE
     Dosage: 150 MG; DAILY; ORAL
     Route: 048
  2. SULFASALAZINE [Concomitant]
  3. CORTICOSTEROID NOS [Concomitant]

REACTIONS (5)
  - HEPATOSPLENOMEGALY [None]
  - MALAISE [None]
  - NIGHT SWEATS [None]
  - SUBDIAPHRAGMATIC ABSCESS [None]
  - T-CELL LYMPHOMA [None]
